FAERS Safety Report 9393136 (Version 1)
Quarter: 2013Q3

REPORT INFORMATION
  Report Type: Spontaneous
  Country: JP (occurrence: JP)
  Receive Date: 20130710
  Receipt Date: 20130710
  Transmission Date: 20140515
  Serious: No
  Sender: FDA-Public Use
  Company Number: JP-ELI_LILLY_AND_COMPANY-JP201306009471

PATIENT
  Age: 36 Year
  Sex: Male

DRUGS (5)
  1. CYMBALTA [Suspect]
     Indication: DEPRESSION
     Dosage: 30 MG, QD
     Route: 048
     Dates: start: 20121006, end: 20130419
  2. CYMBALTA [Suspect]
     Dosage: 30 MG, QD
     Route: 048
     Dates: start: 20130517, end: 20130617
  3. ZYPREXA [Suspect]
     Indication: DEPRESSION
     Dosage: 5 MG, QD
     Route: 048
     Dates: start: 20121006, end: 20130617
  4. HALCION [Suspect]
     Indication: INSOMNIA
     Dosage: 0.25 MG, QD
     Route: 048
     Dates: start: 20130517, end: 20130617
  5. HALCION [Suspect]
     Indication: DEPRESSION

REACTIONS (2)
  - Hepatic function abnormal [Recovering/Resolving]
  - Depressive symptom [Unknown]
